FAERS Safety Report 7740241-9 (Version None)
Quarter: 2011Q3

REPORT INFORMATION
  Report Type: 
  Country: None (occurrence: None)
  Receive Date: 20110909
  Receipt Date: 20110830
  Transmission Date: 20111222
  Serious: Yes (Other)
  Sender: FDA-Public Use
  Company Number: FR-PFIZER INC-2011201329

PATIENT
  Age: 60 Year
  Sex: Male

DRUGS (3)
  1. PROPRANOLOL [Concomitant]
     Indication: OESOPHAGEAL VARICES HAEMORRHAGE
     Dosage: 40 MG, 2X/DAY
     Dates: start: 20080101
  2. IDARUBICIN HYDROCHLORIDE [Suspect]
     Dosage: 2ND COURSE
     Route: 048
     Dates: start: 20110601
  3. IDARUBICIN HYDROCHLORIDE [Suspect]
     Dosage: 1ST COURSE
     Route: 048
     Dates: start: 20110104

REACTIONS (1)
  - ENDOCARDITIS [None]
